FAERS Safety Report 25870154 (Version 4)
Quarter: 2025Q4

REPORT INFORMATION
  Report Type: Report from Study
  Country: US (occurrence: US)
  Receive Date: 20251001
  Receipt Date: 20251222
  Transmission Date: 20260118
  Serious: Yes (Hospitalization, Other)
  Sender: PFIZER
  Company Number: US-PFIZER INC-202500194156

PATIENT
  Age: 65 Year
  Sex: Female

DRUGS (3)
  1. LEVOXYL [Suspect]
     Active Substance: LEVOTHYROXINE SODIUM
     Dosage: 50MCG ONCE A DAY
  2. LAMOTRIGINE [Concomitant]
     Active Substance: LAMOTRIGINE
     Dosage: UNK
  3. LAMICTAL [Concomitant]
     Active Substance: LAMOTRIGINE
     Dosage: UNK

REACTIONS (24)
  - Infection [Unknown]
  - Macular degeneration [Unknown]
  - Seizure [Unknown]
  - Graves^ disease [Unknown]
  - Sepsis [Unknown]
  - Coeliac disease [Unknown]
  - Cytokine storm [Unknown]
  - Pneumonia [Unknown]
  - Swelling [Unknown]
  - Malaise [Unknown]
  - Abdominal pain upper [Unknown]
  - Influenza [Unknown]
  - Brain fog [Unknown]
  - Fall [Unknown]
  - Cardiomegaly [Unknown]
  - Abdominal distension [Unknown]
  - Cardiac disorder [Unknown]
  - Eye disorder [Unknown]
  - Vein disorder [Unknown]
  - Weight decreased [Unknown]
  - Scar [Unknown]
  - Inflammation [Unknown]
  - COVID-19 [Unknown]
  - Intentional product misuse [Unknown]
